FAERS Safety Report 11149440 (Version 1)
Quarter: 2015Q2

REPORT INFORMATION
  Report Type: Spontaneous
  Country: US (occurrence: None)
  Receive Date: 20150528
  Receipt Date: 20150528
  Transmission Date: 20150821
  Serious: Yes (Other)
  Sender: FDA-Public Use
  Company Number: None

PATIENT
  Age: 64 Year
  Sex: Female
  Weight: 62.14 kg

DRUGS (6)
  1. DIAZAPAM 10 MG GEL [Concomitant]
     Active Substance: DIAZEPAM
  2. OLANZIPINE [Concomitant]
     Active Substance: OLANZAPINE
  3. KLONOPIN [Concomitant]
     Active Substance: CLONAZEPAM
  4. NOCOR [Concomitant]
  5. LEVOTHYROXINE 25MCG MYLAN [Suspect]
     Active Substance: LEVOTHYROXINE
     Indication: THYROID HORMONES DECREASED
     Route: 048
     Dates: start: 20150512, end: 20150525
  6. OXYGEN CONCENTRATOR [Concomitant]

REACTIONS (1)
  - Muscle spasms [None]

NARRATIVE: CASE EVENT DATE: 20150513
